FAERS Safety Report 4314574-2 (Version None)
Quarter: 2004Q1

REPORT INFORMATION
  Report Type: 
  Country: None (occurrence: None)
  Receive Date: 20040308
  Receipt Date: 20040220
  Transmission Date: 20041129
  Serious: Yes (Hospitalization)
  Sender: FDA-Public Use
  Company Number: 2004-DE-00851GD

PATIENT
  Age: 78 Year
  Sex: Female

DRUGS (7)
  1. LITHIUM CARBONATE [Suspect]
     Indication: DEPRESSION
     Dosage: 250 - 500 MG/DAY
  2. FUROSEMIDE [Suspect]
     Indication: OEDEMA PERIPHERAL
     Dosage: 60 MG
  3. IMIPRAMINE [Suspect]
     Indication: DEPRESSION
     Dosage: 100 -125 MG/DAY
  4. AMINEPTINE (AMINEPTINE) [Suspect]
     Indication: DEPRESSION
     Dosage: 150 MG
  5. LEVOPROMAZNE (LEVOPROMAZINE) [Suspect]
     Indication: DEPRESSION
     Dosage: 25 MG
  6. CAPTOPRIL [Suspect]
     Indication: OEDEMA
     Dosage: 50 MG
  7. LORAZEPAM [Suspect]
     Indication: DEPRESSION
     Dosage: 2.5 MG

REACTIONS (12)
  - AORTIC STENOSIS [None]
  - BUNDLE BRANCH BLOCK LEFT [None]
  - CARDIAC FAILURE [None]
  - CARDIOTOXICITY [None]
  - DILATATION VENTRICULAR [None]
  - DYSPNOEA EXERTIONAL [None]
  - HYPOKALAEMIA [None]
  - OEDEMA PERIPHERAL [None]
  - PULMONARY ARTERIAL PRESSURE INCREASED [None]
  - RENAL FAILURE [None]
  - VENTRICULAR EXTRASYSTOLES [None]
  - VENTRICULAR HYPERTROPHY [None]
